FAERS Safety Report 11255659 (Version 2)
Quarter: 2015Q3

REPORT INFORMATION
  Report Type: Spontaneous
  Country: US (occurrence: US)
  Receive Date: 20150709
  Receipt Date: 20150817
  Transmission Date: 20151125
  Serious: Yes (Other)
  Sender: FDA-Public Use
  Company Number: US-UCBSA-2015021972

PATIENT
  Age: 61 Year
  Sex: Female

DRUGS (1)
  1. CIMZIA [Suspect]
     Active Substance: CERTOLIZUMAB PEGOL
     Indication: RHEUMATOID ARTHRITIS
     Dosage: 200 MG, 2X/MONTH (EXP DATE: 30-JUN-2016)
     Route: 058
     Dates: start: 20150515

REACTIONS (5)
  - Diarrhoea [Unknown]
  - Influenza like illness [Unknown]
  - Decreased appetite [Unknown]
  - Urine output increased [Unknown]
  - Chills [Unknown]

NARRATIVE: CASE EVENT DATE: 2015
